FAERS Safety Report 5838894-5 (Version None)
Quarter: 2008Q3

REPORT INFORMATION
  Report Type: 
  Country: None (occurrence: None)
  Receive Date: 20080808
  Receipt Date: 20080729
  Transmission Date: 20090109
  Serious: Yes (Hospitalization, Other)
  Sender: FDA-Public Use
  Company Number: PHHY2008JP10604

PATIENT

DRUGS (4)
  1. NEORAL [Suspect]
     Indication: NEPHROTIC SYNDROME
     Dosage: 50 MG/DAY
     Route: 048
     Dates: start: 20061105, end: 20061106
  2. ZONISAMIDE [Suspect]
     Dosage: 45 MG/DAY
     Route: 048
     Dates: start: 20061109, end: 20070202
  3. PREDNISOLONE [Concomitant]
     Indication: NEPHROTIC SYNDROME
  4. METHYLPREDNISOLONE [Concomitant]
     Indication: NEPHROTIC SYNDROME
     Dosage: UNK

REACTIONS (10)
  - ALTERED STATE OF CONSCIOUSNESS [None]
  - APHASIA [None]
  - CEREBROVASCULAR SPASM [None]
  - CONVULSION [None]
  - EYE MOVEMENT DISORDER [None]
  - HYPERTENSION [None]
  - LEUKOARAIOSIS [None]
  - NUCLEAR MAGNETIC RESONANCE IMAGING ABNORMAL [None]
  - REVERSIBLE POSTERIOR LEUKOENCEPHALOPATHY SYNDROME [None]
  - TRANSIENT ISCHAEMIC ATTACK [None]
